FAERS Safety Report 4530353-5 (Version None)
Quarter: 2004Q4

REPORT INFORMATION
  Report Type: 
  Country: None (occurrence: None)
  Receive Date: 20041215
  Receipt Date: 20041202
  Transmission Date: 20050328
  Serious: Yes (Hospitalization)
  Sender: FDA-Public Use
  Company Number: 2004101967

PATIENT
  Sex: Male

DRUGS (3)
  1. GEODON [Suspect]
     Indication: PSYCHOTIC DISORDER
  2. LEVOMEPROMAZINE (LEVOMEPROMAZINE) [Concomitant]
  3. HALOPERIDOL [Concomitant]

REACTIONS (4)
  - ASTHMA [None]
  - EXANTHEM [None]
  - PHARYNGEAL OEDEMA [None]
  - TYPE IV HYPERSENSITIVITY REACTION [None]
